FAERS Safety Report 6297997-4 (Version None)
Quarter: 2009Q3

REPORT INFORMATION
  Report Type: 
  Country: None (occurrence: None)
  Receive Date: 20090805
  Receipt Date: 20090804
  Transmission Date: 20100115
  Serious: Yes (Hospitalization)
  Sender: FDA-Public Use
  Company Number: B0587040A

PATIENT
  Age: 70 Year
  Sex: Female
  Weight: 57 kg

DRUGS (2)
  1. HYCAMTIN [Suspect]
     Indication: CERVIX CARCINOMA
     Dosage: .75MGM2 PER DAY
     Route: 042
     Dates: start: 20090629, end: 20090630
  2. CISPLATIN [Suspect]
     Indication: CERVIX CARCINOMA
     Dosage: 50MGM2 PER DAY
     Route: 042
     Dates: start: 20090629

REACTIONS (1)
  - BONE MARROW DISORDER [None]
